FAERS Safety Report 5279737-0 (Version None)
Quarter: 2007Q1

REPORT INFORMATION
  Report Type: 
  Country: None (occurrence: None)
  Receive Date: 20070329
  Receipt Date: 20070327
  Transmission Date: 20070707
  Serious: Yes (Other)
  Sender: FDA-Public Use
  Company Number: US-RB-005293-07

PATIENT
  Sex: Female

DRUGS (4)
  1. SUBOXONE [Suspect]
     Route: 060
     Dates: start: 20050912, end: 20070219
  2. SUBOXONE [Suspect]
     Route: 060
     Dates: start: 20070223
  3. SUBUTEX [Suspect]
     Route: 060
     Dates: start: 20070220, end: 20070222
  4. CONTRACEPTIVE PATCH [Concomitant]
     Indication: CONTRACEPTION

REACTIONS (2)
  - ABORTION SPONTANEOUS [None]
  - DRUG EXPOSURE DURING PREGNANCY [None]
